FAERS Safety Report 24697039 (Version 2)
Quarter: 2024Q4

REPORT INFORMATION
  Report Type: Report from Study
  Country: US (occurrence: US)
  Receive Date: 20241204
  Receipt Date: 20241223
  Transmission Date: 20250114
  Serious: Yes (Death, Hospitalization, Other)
  Sender: ABBVIE
  Company Number: US-ABBVIE-6029686

PATIENT
  Age: 93 Year
  Sex: Male
  Weight: 60 kg

DRUGS (2)
  1. LINZESS [Suspect]
     Active Substance: LINACLOTIDE
     Indication: Large intestinal stenosis
     Route: 048
  2. ELIQUIS [Concomitant]
     Active Substance: APIXABAN
     Indication: Cardiac disorder

REACTIONS (3)
  - Cerebral haemorrhage [Fatal]
  - Fall [Recovered/Resolved]
  - Brain injury [Fatal]

NARRATIVE: CASE EVENT DATE: 20241104
